FAERS Safety Report 7772842-6 (Version None)
Quarter: 2011Q3

REPORT INFORMATION
  Report Type: 
  Country: None (occurrence: None)
  Receive Date: 20110922
  Receipt Date: 20100811
  Transmission Date: 20111222
  Serious: Yes (Hospitalization, Other)
  Sender: FDA-Public Use
  Company Number: US-ASTRAZENECA-2010SE37826

PATIENT
  Age: 42 Year
  Sex: Female

DRUGS (6)
  1. CLONAZEPAM [Concomitant]
  2. PERCOCET [Suspect]
     Indication: UTERINE LEIOMYOMA
  3. PERCOCET [Suspect]
  4. SEROQUEL XR [Suspect]
     Route: 048
  5. PROZAC [Concomitant]
  6. SEROQUEL XR [Suspect]
     Indication: MAJOR DEPRESSION
     Route: 048
     Dates: start: 20071011

REACTIONS (4)
  - TREMOR [None]
  - UTERINE LEIOMYOMA [None]
  - SUICIDE ATTEMPT [None]
  - CONVULSION [None]
